FAERS Safety Report 6611342-3 (Version None)
Quarter: 2010Q1

REPORT INFORMATION
  Report Type: 
  Country: None (occurrence: None)
  Receive Date: 20100303
  Receipt Date: 20100217
  Transmission Date: 20100710
  Serious: Yes (Death, Other)
  Sender: FDA-Public Use
  Company Number: JP-BAYER-200910621BYL

PATIENT
  Age: 15 Year
  Sex: Female

DRUGS (4)
  1. FLUDARA [Suspect]
     Indication: STEM CELL TRANSPLANT
     Dosage: HLA MATCHED
     Route: 042
  2. MELPHALAN [Concomitant]
     Indication: STEM CELL TRANSPLANT
     Dosage: TOTAL DAILY DOSE: 140 MG/M2
     Route: 065
  3. TACROLIMUS HYDRATE [Concomitant]
     Indication: PROPHYLAXIS AGAINST GRAFT VERSUS HOST DISEASE
     Route: 065
  4. METHOTREXATE [Concomitant]
     Indication: PROPHYLAXIS AGAINST GRAFT VERSUS HOST DISEASE
     Route: 065

REACTIONS (2)
  - HAEMORRHAGE INTRACRANIAL [None]
  - HISTIOCYTOSIS HAEMATOPHAGIC [None]
